FAERS Safety Report 6868624-X (Version None)
Quarter: 2010Q3

REPORT INFORMATION
  Report Type: 
  Country: None (occurrence: None)
  Receive Date: 20100722
  Receipt Date: 20080606
  Transmission Date: 20110219
  Serious: No
  Sender: FDA-Public Use
  Company Number: US-PFIZER INC-2008047817

PATIENT
  Sex: Female
  Weight: 68.181 kg

DRUGS (4)
  1. CHANTIX [Suspect]
     Indication: SMOKING CESSATION THERAPY
     Dates: start: 20080603
  2. BENICAR [Concomitant]
  3. LISINOPRIL [Concomitant]
  4. PREMARIN [Concomitant]

REACTIONS (2)
  - NAUSEA [None]
  - NIGHTMARE [None]
